FAERS Safety Report 8891113 (Version 6)
Quarter: 2013Q2

REPORT INFORMATION
  Report Type: Report from Study
  Country: US (occurrence: US)
  Receive Date: 20121107
  Receipt Date: 20130617
  Transmission Date: 20140414
  Serious: Yes (Hospitalization, Other)
  Sender: FDA-Public Use
  Company Number: US-ROCHE-1150992

PATIENT
  Age: 63 Year
  Sex: Male

DRUGS (14)
  1. PEG-INTERFERON ALFA 2A [Suspect]
     Indication: HEPATITIS C
     Route: 058
     Dates: start: 20120618, end: 20120702
  2. TELAPREVIR [Suspect]
     Indication: HEPATITIS C
     Route: 048
     Dates: start: 20120618, end: 20120704
  3. RIBAVIRIN [Suspect]
     Indication: HEPATITIS C
     Route: 048
     Dates: start: 20120618, end: 20120704
  4. IBUPROFEN [Concomitant]
     Route: 065
     Dates: start: 200908
  5. KETOCONAZOLE [Concomitant]
     Route: 065
     Dates: start: 20081215
  6. MEGESTROL [Concomitant]
     Route: 065
     Dates: end: 20110115
  7. LACTULOSE [Concomitant]
     Route: 065
     Dates: start: 20110615, end: 20111215
  8. METHADONE [Concomitant]
     Route: 065
     Dates: start: 20100815, end: 20120610
  9. DILAUDID [Concomitant]
     Route: 065
     Dates: start: 20060815
  10. ACETAMINOPHEN [Concomitant]
     Route: 065
     Dates: start: 200908
  11. SENNOSIDES [Concomitant]
     Route: 065
     Dates: start: 201008
  12. METFORMIN [Concomitant]
     Route: 065
     Dates: start: 201102
  13. COMPAZINE [Concomitant]
     Route: 065
     Dates: start: 20120626, end: 20120628
  14. CYMBALTA [Concomitant]
     Route: 065
     Dates: start: 20070615, end: 20080615

REACTIONS (3)
  - Anaemia [Recovered/Resolved]
  - Dehydration [Recovered/Resolved]
  - Renal failure acute [Recovered/Resolved]
